FAERS Safety Report 4630013-6 (Version None)
Quarter: 2005Q2

REPORT INFORMATION
  Report Type: 
  Country: None (occurrence: None)
  Receive Date: 20050408
  Receipt Date: 20050331
  Transmission Date: 20051028
  Serious: Yes (Disabling)
  Sender: FDA-Public Use
  Company Number: US-KINGPHARMUSA00001-K200500449

PATIENT
  Age: 64 Year
  Sex: Female

DRUGS (5)
  1. ALTACE [Suspect]
     Indication: HYPERTENSION
     Dosage: 5 MG, QD
     Route: 048
     Dates: start: 20041025, end: 20050113
  2. BENDROFLUMETHIAZIDE(BENDROFLUMETHIAZIDE) [Concomitant]
     Dosage: 2.5 MG, UNK
     Route: 048
  3. ATORVASTATIN CALCIUM [Concomitant]
     Dosage: 20 MG, UNK
     Route: 048
  4. GASTROCOTE [Concomitant]
     Dosage: 1X PRN
     Route: 048
  5. AMITRIPTYLINE HCL [Concomitant]
     Indication: ANXIETY
     Dosage: 10 MG, UNK
     Route: 048
     Dates: start: 20030626

REACTIONS (3)
  - DEPRESSED MOOD [None]
  - DEPRESSION [None]
  - LIBIDO DECREASED [None]
